FAERS Safety Report 5916294-7 (Version None)
Quarter: 2008Q4

REPORT INFORMATION
  Report Type: 
  Country: None (occurrence: None)
  Receive Date: 20081013
  Receipt Date: 20081007
  Transmission Date: 20090506
  Serious: Yes (Death)
  Sender: FDA-Public Use
  Company Number: PHHY2008BR18640

PATIENT
  Age: 77 Year
  Sex: Female

DRUGS (2)
  1. STALEVO 100 [Suspect]
     Indication: PARKINSON'S DISEASE
     Dosage: UNK
     Route: 048
  2. INSULIN [Concomitant]

REACTIONS (6)
  - DYSPHAGIA [None]
  - GASTROSTOMY [None]
  - PARKINSON'S DISEASE [None]
  - PNEUMONIA [None]
  - RESPIRATORY FAILURE [None]
  - URINARY TRACT INFECTION [None]
